FAERS Safety Report 23550351 (Version 4)
Quarter: 2024Q1

REPORT INFORMATION
  Report Type: Spontaneous
  Country: JP (occurrence: None)
  Receive Date: 20240221
  Receipt Date: 20240329
  Transmission Date: 20240409
  Serious: Yes (Disabling, Other)
  Sender: FDA-Public Use
  Company Number: 2024A039966

PATIENT
  Age: 82 Year
  Sex: Male
  Weight: 63 kg

DRUGS (10)
  1. DAPAGLIFLOZIN [Suspect]
     Active Substance: DAPAGLIFLOZIN
     Indication: Chronic kidney disease
     Route: 048
     Dates: start: 202301
  2. FEBUXOSTAT [Suspect]
     Active Substance: FEBUXOSTAT
     Route: 048
  3. AMLODIPINE BESYLATE\IRBESARTAN [Suspect]
     Active Substance: AMLODIPINE BESYLATE\IRBESARTAN
     Indication: Atrial fibrillation
     Route: 048
  4. ASPIRIN [Concomitant]
     Active Substance: ASPIRIN
     Indication: Atrial fibrillation
     Route: 048
  5. METHYLCOBALAMIN [Concomitant]
     Active Substance: METHYLCOBALAMIN
     Indication: Type 2 diabetes mellitus
     Route: 048
  6. DIPYRIDAMOLE [Concomitant]
     Active Substance: DIPYRIDAMOLE
     Indication: Single functional kidney
     Route: 048
  7. VOGLIBOSE [Concomitant]
     Active Substance: VOGLIBOSE
     Indication: Type 2 diabetes mellitus
     Route: 048
  8. SUPACAL [Concomitant]
     Route: 048
  9. LACB R [Concomitant]
     Route: 048
  10. COMBINED GASTROINTESTINAL AGENTS [Concomitant]
     Route: 048

REACTIONS (3)
  - Embolism [Recovered/Resolved]
  - Acute kidney injury [Recovered/Resolved with Sequelae]
  - Melaena [Unknown]

NARRATIVE: CASE EVENT DATE: 20230407
